FAERS Safety Report 6099363-3 (Version None)
Quarter: 2009Q1

REPORT INFORMATION
  Report Type: 
  Country: None (occurrence: None)
  Receive Date: 20090226
  Receipt Date: 20090217
  Transmission Date: 20090719
  Serious: Yes (Other)
  Sender: FDA-Public Use
  Company Number: A-US2007-14599

PATIENT
  Age: 85 Year
  Sex: Male

DRUGS (6)
  1. TRACLEER [Suspect]
     Indication: PULMONARY HYPERTENSION
     Dosage: ORAL
     Route: 048
     Dates: start: 20070104
  2. LIPITOR [Concomitant]
  3. MECLIZINE (MECHLIZINE) [Concomitant]
  4. LASIX [Concomitant]
  5. FOSAMAX (ALENDRONATE S0DIUM) [Concomitant]
  6. FOLIC ACID [Concomitant]

REACTIONS (8)
  - COUGH [None]
  - DIZZINESS [None]
  - DYSPNOEA [None]
  - MYELODYSPLASTIC SYNDROME [None]
  - NORMOCHROMIC NORMOCYTIC ANAEMIA [None]
  - OFF LABEL USE [None]
  - PANCYTOPENIA [None]
  - RHINITIS [None]
